FAERS Safety Report 12374709 (Version 6)
Quarter: 2016Q4

REPORT INFORMATION
  Report Type: Spontaneous
  Country: US (occurrence: US)
  Receive Date: 20160517
  Receipt Date: 20161026
  Transmission Date: 20170207
  Serious: No
  Sender: FDA-Public Use
  Company Number: US-PFIZER INC-2016240553

PATIENT
  Age: 55 Year
  Sex: Male
  Weight: 102 kg

DRUGS (10)
  1. LYRICA [Concomitant]
     Active Substance: PREGABALIN
     Dosage: 150 MG, UNK
  2. OXAPROZIN. [Concomitant]
     Active Substance: OXAPROZIN
     Dosage: 20 MG, UNK
  3. VIAGRA [Suspect]
     Active Substance: SILDENAFIL CITRATE
     Indication: URINARY INCONTINENCE
     Dosage: UNK  (1 EVERY 3 DAYS)
     Dates: start: 2014
  4. ASPIRIN. [Concomitant]
     Active Substance: ASPIRIN
     Dosage: 5 MG, UNK
  5. VIAGRA [Suspect]
     Active Substance: SILDENAFIL CITRATE
     Indication: PROSTATOMEGALY
     Dosage: 100 MG, 1X/DAY (ONE EACH DAY IN THE MORNING OR TOWARD THE AFTERNOON)
     Route: 048
     Dates: start: 2010
  6. HYDROCODONE [Concomitant]
     Active Substance: HYDROCODONE
     Dosage: UNK (3/325 MG)
  7. VIAGRA [Suspect]
     Active Substance: SILDENAFIL CITRATE
     Indication: URINE ANALYSIS ABNORMAL
     Dosage: UNK,(ONE VIAGRA EVERY 2 OR 3 DAYS, SINCE HE ONLY HAD 10 PILLS FOR THE WHOLE MONTH)
  8. QUINAPRIL. [Concomitant]
     Active Substance: QUINAPRIL
     Dosage: 20 MG, UNK
  9. NADOLOL. [Concomitant]
     Active Substance: NADOLOL
     Dosage: 100 MG, UNK
  10. ALEVE [Concomitant]
     Active Substance: NAPROXEN SODIUM
     Dosage: UNK

REACTIONS (4)
  - Pain [Not Recovered/Not Resolved]
  - Product use issue [Recovered/Resolved]
  - Therapeutic response unexpected [Recovered/Resolved]
  - Pre-existing condition improved [Recovered/Resolved]

NARRATIVE: CASE EVENT DATE: 2014
